FAERS Safety Report 17800631 (Version 1)
Quarter: 2020Q2

REPORT INFORMATION
  Report Type: Spontaneous
  Country: FR (occurrence: FR)
  Receive Date: 20200519
  Receipt Date: 20200519
  Transmission Date: 20200714
  Serious: Yes (Hospitalization)
  Sender: FDA-Public Use
  Company Number: FR-ROCHE-2600367

PATIENT
  Age: 58 Year
  Sex: Female
  Weight: 55 kg

DRUGS (15)
  1. SERESTA [Concomitant]
     Active Substance: OXAZEPAM
  2. IBUPROFENE [Concomitant]
     Active Substance: IBUPROFEN
  3. CALTRATE [CALCIUM CARBONATE;COLECALCIFEROL] [Concomitant]
  4. CREON [Concomitant]
     Active Substance: PANCRELIPASE AMYLASE\PANCRELIPASE LIPASE\PANCRELIPASE PROTEASE
  5. DAFALGAN [Concomitant]
     Active Substance: ACETAMINOPHEN
  6. METEOSPASMYL (ALVERINE CITRATE\DIMETHICONE) [Concomitant]
     Active Substance: ALVERINE CITRATE\DIMETHICONE
  7. CELLCEPT [Suspect]
     Active Substance: MYCOPHENOLATE MOFETIL\MYCOPHENOLATE MOFETIL HYDROCHLORIDE
     Indication: RETROPERITONEAL FIBROSIS
     Dosage: 1 G/5 ML
     Route: 048
     Dates: start: 20190828
  8. LOPERAMIDE HYDROCHLORIDE. [Concomitant]
     Active Substance: LOPERAMIDE HYDROCHLORIDE
  9. UVEDOSE [Concomitant]
     Active Substance: CHOLECALCIFEROL
  10. NOVORAPID [Concomitant]
     Active Substance: INSULIN ASPART
  11. DIFFU K [Concomitant]
     Active Substance: POTASSIUM CHLORIDE
  12. ESOMEPRAZOLE. [Concomitant]
     Active Substance: ESOMEPRAZOLE MAGNESIUM
  13. PRAVASTATINE [PRAVASTATIN SODIUM] [Concomitant]
     Active Substance: PRAVASTATIN SODIUM
  14. PREDNISONE. [Suspect]
     Active Substance: PREDNISONE
     Indication: RETROPERITONEAL FIBROSIS
     Route: 048
     Dates: start: 20190828
  15. CLOPIDOGREL [Concomitant]
     Active Substance: CLOPIDOGREL BISULFATE

REACTIONS (1)
  - Diabetes mellitus inadequate control [Recovered/Resolved]

NARRATIVE: CASE EVENT DATE: 201909
